FAERS Safety Report 7120652-5 (Version None)
Quarter: 2010Q4

REPORT INFORMATION
  Report Type: 
  Country: None (occurrence: None)
  Receive Date: 20101124
  Receipt Date: 20101116
  Transmission Date: 20110411
  Serious: Yes (Hospitalization)
  Sender: FDA-Public Use
  Company Number: US-US-EMD SERONO, INC.-7007399

PATIENT
  Sex: Male
  Weight: 90 kg

DRUGS (7)
  1. REBIF [Suspect]
     Indication: MULTIPLE SCLEROSIS
     Route: 058
     Dates: start: 20091229, end: 20100816
  2. REBIF [Suspect]
     Route: 058
     Dates: start: 20101113
  3. ATENOLOL [Concomitant]
     Indication: HYPERTENSION
  4. TRAZODONE HCL [Concomitant]
     Indication: SLEEP DISORDER
  5. VITAMIN D [Concomitant]
     Dates: start: 20100801
  6. VITAMIN B-12 [Concomitant]
     Dates: start: 20100801
  7. IRON [Concomitant]
     Dates: start: 20100801

REACTIONS (16)
  - ANXIETY [None]
  - ARTHROPATHY [None]
  - BACK DISORDER [None]
  - CONTUSION [None]
  - DEPRESSED MOOD [None]
  - FALL [None]
  - FEELING HOT [None]
  - HYPOAESTHESIA [None]
  - INJECTION SITE INFECTION [None]
  - INJECTION SITE REACTION [None]
  - LOSS OF CONSCIOUSNESS [None]
  - MULTIPLE SCLEROSIS RELAPSE [None]
  - MUSCLE TIGHTNESS [None]
  - PAIN [None]
  - PAIN IN EXTREMITY [None]
  - RASH [None]
